FAERS Safety Report 12190930 (Version 2)
Quarter: 2016Q1

REPORT INFORMATION
  Report Type: Spontaneous
  Country: US (occurrence: US)
  Receive Date: 20160318
  Receipt Date: 20160330
  Transmission Date: 20160526
  Serious: Yes (Life-Threatening, Hospitalization)
  Sender: FDA-Public Use
  Company Number: US-DRREDDYS-USA/USA/16/0078027

PATIENT
  Age: 17 Year
  Sex: Male

DRUGS (11)
  1. METOPROLOL SUCCINATE. [Suspect]
     Active Substance: METOPROLOL SUCCINATE
     Indication: SUICIDE ATTEMPT
     Route: 065
  2. CAFFEINE. [Concomitant]
     Active Substance: CAFFEINE
     Indication: PRODUCT USED FOR UNKNOWN INDICATION
     Route: 065
  3. CITALOPRAM [Concomitant]
     Active Substance: CITALOPRAM HYDROBROMIDE
     Indication: SUICIDE ATTEMPT
     Route: 065
  4. ZOLPIDEM [Concomitant]
     Active Substance: ZOLPIDEM\ZOLPIDEM TARTRATE
     Indication: SUICIDE ATTEMPT
     Route: 065
  5. AMLODIPINE BESYLATE. [Suspect]
     Active Substance: AMLODIPINE BESYLATE
     Indication: SUICIDE ATTEMPT
     Route: 065
  6. VALIUM [Concomitant]
     Active Substance: DIAZEPAM
     Indication: SUICIDE ATTEMPT
     Route: 065
  7. LEVOTHYROXINE. [Concomitant]
     Active Substance: LEVOTHYROXINE
     Indication: SUICIDE ATTEMPT
     Route: 065
  8. TRAZODONE [Concomitant]
     Active Substance: TRAZODONE HYDROCHLORIDE
     Indication: SUICIDE ATTEMPT
     Route: 065
  9. DIPHENHYDRAMINE. [Concomitant]
     Active Substance: DIPHENHYDRAMINE
     Indication: SUICIDE ATTEMPT
     Route: 065
  10. FUROSEMIDE. [Concomitant]
     Active Substance: FUROSEMIDE
     Indication: SUICIDE ATTEMPT
     Route: 065
  11. WARFARIN [Concomitant]
     Active Substance: WARFARIN
     Indication: SUICIDE ATTEMPT
     Route: 065

REACTIONS (11)
  - Mental status changes [Recovered/Resolved]
  - Suicide attempt [Unknown]
  - Overdose [Recovered/Resolved]
  - Gait disturbance [Unknown]
  - Bradycardia [Unknown]
  - Hypotension [Unknown]
  - Cardiac arrest [Recovered/Resolved]
  - Atrioventricular block first degree [Unknown]
  - Dysarthria [Recovered/Resolved]
  - Electrocardiogram QT prolonged [Unknown]
  - Lethargy [Recovered/Resolved]
